FAERS Safety Report 8235100-1 (Version None)
Quarter: 2012Q1

REPORT INFORMATION
  Report Type: 
  Country: None (occurrence: None)
  Receive Date: 20120326
  Receipt Date: 20120320
  Transmission Date: 20120608
  Serious: No
  Sender: FDA-Public Use
  Company Number: US-PFIZER INC-2012072763

PATIENT
  Sex: Female
  Weight: 76.19 kg

DRUGS (1)
  1. LYRICA [Suspect]
     Indication: FIBROMYALGIA
     Dosage: 100 MG, 1X/DAY
     Route: 048
     Dates: start: 20120313

REACTIONS (4)
  - PAIN [None]
  - TOOTH DISORDER [None]
  - LIP BLISTER [None]
  - HYPOAESTHESIA [None]
